FAERS Safety Report 6999132-3 (Version None)
Quarter: 2010Q3

REPORT INFORMATION
  Report Type: 
  Country: None (occurrence: None)
  Receive Date: 20100920
  Receipt Date: 20100217
  Transmission Date: 20110219
  Serious: No
  Sender: FDA-Public Use
  Company Number: US-ASTRAZENECA-2010SE07171

PATIENT
  Sex: Female

DRUGS (3)
  1. SEROQUEL [Suspect]
     Route: 048
  2. GLYBURIDE [Concomitant]
  3. FORTAMET [Concomitant]

REACTIONS (3)
  - HUNGER [None]
  - HYPERGLYCAEMIA [None]
  - MALAISE [None]
